FAERS Safety Report 18673035 (Version 7)
Quarter: 2024Q1

REPORT INFORMATION
  Report Type: Other
  Country: DE (occurrence: None)
  Receive Date: 20201229
  Receipt Date: 20240320
  Transmission Date: 20240409
  Serious: Yes (Hospitalization, Other)
  Sender: FDA-Public Use
  Company Number: DE-ROCHE-2736178

PATIENT
  Age: 28 Year
  Sex: Female
  Weight: 90 kg

DRUGS (15)
  1. OCREVUS [Suspect]
     Active Substance: OCRELIZUMAB
     Indication: Relapsing-remitting multiple sclerosis
     Route: 042
     Dates: start: 20201202
  2. OCREVUS [Suspect]
     Active Substance: OCRELIZUMAB
     Dosage: SUBSEQUENT DOSE 600 MG ONCE IN 192 DAYS, 179 DAYS, 184 DAYS
     Route: 042
     Dates: start: 20201216
  3. OCREVUS [Suspect]
     Active Substance: OCRELIZUMAB
     Route: 042
     Dates: start: 20221218, end: 20221218
  4. OCREVUS [Suspect]
     Active Substance: OCRELIZUMAB
     Route: 042
     Dates: start: 20231121, end: 20231121
  5. OXYCODONE [Concomitant]
     Active Substance: OXYCODONE\OXYCODONE HYDROCHLORIDE
  6. NOVALGIN (METAMIZOLE SODIUM) [Concomitant]
     Active Substance: METAMIZOLE SODIUM
  7. SUMATRIPTAN [Concomitant]
     Active Substance: SUMATRIPTAN
  8. GABAPENTIN [Concomitant]
     Active Substance: GABAPENTIN
     Dosage: 1-0-1
  9. CHOLECALCIFEROL [Concomitant]
     Active Substance: CHOLECALCIFEROL
     Dosage: IN THE MORNING
  10. CITALOPRAM [Concomitant]
     Active Substance: CITALOPRAM\CITALOPRAM HYDROBROMIDE
     Dosage: IN THE MORNINGIN THE MORNING
  11. LEVOTHYROXINE [Concomitant]
     Active Substance: LEVOTHYROXINE\LEVOTHYROXINE SODIUM
  12. BIOTIN [Concomitant]
     Active Substance: BIOTIN
  13. LACTULOSE [Concomitant]
     Active Substance: LACTULOSE
  14. QUETIAPINE [Concomitant]
     Active Substance: QUETIAPINE
     Dosage: AT NIGHTAT NIGHT
  15. AMANTADINE [Concomitant]
     Active Substance: AMANTADINE

REACTIONS (10)
  - Intestinal obstruction [Recovered/Resolved]
  - Multiple sclerosis [Recovering/Resolving]
  - Pyrexia [Recovered/Resolved]
  - Paraesthesia [Recovering/Resolving]
  - Dysphagia [Recovering/Resolving]
  - Pain [Recovering/Resolving]
  - Fatigue [Not Recovered/Not Resolved]
  - COVID-19 [Recovered/Resolved]
  - Visual impairment [Recovered/Resolved]
  - Pneumonia [Recovered/Resolved]

NARRATIVE: CASE EVENT DATE: 20201202
